FAERS Safety Report 6150878-9 (Version None)
Quarter: 2009Q2

REPORT INFORMATION
  Report Type: 
  Country: None (occurrence: None)
  Receive Date: 20090406
  Receipt Date: 20090323
  Transmission Date: 20091009
  Serious: Yes (Other)
  Sender: FDA-Public Use
  Company Number: THYM-11476

PATIENT
  Age: 30 Year
  Sex: Male
  Weight: 86 kg

DRUGS (5)
  1. THYMOGLOBULIN [Suspect]
     Indication: RENAL TRANSPLANT
     Dosage: 175 MG, QD, INTRAVENOUS
     Route: 042
     Dates: start: 20070518, end: 20070520
  2. THYMOGLOBULIN [Suspect]
     Indication: TRANSPLANT REJECTION
     Dosage: 175 MG, QD, INTRAVENOUS
     Route: 042
     Dates: start: 20070518, end: 20070520
  3. TACROLIMUS [Concomitant]
  4. PREDNISONE TAB [Concomitant]
  5. MYFORTIC (MYUCOPHENOLIC ACID) [Concomitant]

REACTIONS (2)
  - KIDNEY TRANSPLANT REJECTION [None]
  - SERUM SICKNESS [None]
